FAERS Safety Report 8096594 (Version 4)
Quarter: 2013Q1

REPORT INFORMATION
  Report Type: Spontaneous
  Country: US (occurrence: US)
  Receive Date: 20110818
  Receipt Date: 20130121
  Transmission Date: 20140127
  Serious: Yes (Hospitalization, Other)
  Sender: FDA-Public Use
  Company Number: US-JNJFOC-20110806514

PATIENT
  Age: 58 Year
  Sex: Female

DRUGS (6)
  1. LEVAQUIN [Suspect]
     Indication: INFECTION
     Route: 048
     Dates: start: 200311, end: 200610
  2. METHYLPREDNISOLONE [Suspect]
     Indication: PRODUCT USED FOR UNKNOWN INDICATION
  3. LIPITOR [Concomitant]
  4. LISINOPRIL [Concomitant]
  5. HYDROCODONE [Concomitant]
  6. SKELAXIN [Concomitant]

REACTIONS (5)
  - Joint injury [Unknown]
  - Rotator cuff syndrome [Unknown]
  - Cubital tunnel syndrome [Unknown]
  - Carpal tunnel syndrome [Unknown]
  - Rotator cuff syndrome [Unknown]
